FAERS Safety Report 4296207-7 (Version None)
Quarter: 2004Q1

REPORT INFORMATION
  Report Type: 
  Country: None (occurrence: None)
  Receive Date: 20040217
  Receipt Date: 20030917
  Transmission Date: 20041129
  Serious: No
  Sender: FDA-Public Use
  Company Number: US-GLAXOSMITHKLINE-A0426338A

PATIENT
  Age: 56 Year
  Sex: Female

DRUGS (4)
  1. LAMICTAL [Suspect]
     Indication: BIPOLAR DISORDER
     Route: 048
     Dates: start: 20030601
  2. SEROQUEL [Concomitant]
  3. TEGRETOL [Concomitant]
  4. EFFEXOR [Concomitant]

REACTIONS (1)
  - HALLUCINATION, VISUAL [None]
